FAERS Safety Report 5768530-8 (Version None)
Quarter: 2008Q2

REPORT INFORMATION
  Report Type: 
  Country: None (occurrence: None)
  Receive Date: 20080612
  Receipt Date: 20080305
  Transmission Date: 20081010
  Serious: No
  Sender: FDA-Public Use
  Company Number: US-ABBOTT-08P-163-0441415-00

PATIENT
  Sex: Female
  Weight: 49.032 kg

DRUGS (4)
  1. HUMIRA [Suspect]
     Indication: RHEUMATOID ARTHRITIS
     Route: 058
     Dates: start: 20080101
  2. RISEDRONATE SODIUM [Concomitant]
     Indication: DRUG USE FOR UNKNOWN INDICATION
  3. MULTI-VITAMIN [Concomitant]
     Indication: DRUG USE FOR UNKNOWN INDICATION
  4. VALSARTAN [Concomitant]
     Indication: HYPERTENSION

REACTIONS (2)
  - VENIPUNCTURE SITE SWELLING [None]
  - VESSEL PUNCTURE SITE HAEMATOMA [None]
